FAERS Safety Report 4733330-4 (Version None)
Quarter: 2005Q3

REPORT INFORMATION
  Report Type: 
  Country: None (occurrence: None)
  Receive Date: 20050801
  Receipt Date: 20050801
  Transmission Date: 20060218
  Serious: Yes (Other)
  Sender: FDA-Public Use
  Company Number: None

PATIENT
  Age: 71 Year
  Sex: Female
  Weight: 72 kg

DRUGS (1)
  1. PHENERGAN [Suspect]
     Dosage: 12.5 MG IVP
     Route: 042
     Dates: start: 20050729

REACTIONS (5)
  - AGITATION [None]
  - CHEST PAIN [None]
  - DYSPNOEA [None]
  - LIMB DISCOMFORT [None]
  - RESTLESSNESS [None]
